FAERS Safety Report 7688777-3 (Version None)
Quarter: 2011Q3

REPORT INFORMATION
  Report Type: 
  Country: None (occurrence: None)
  Receive Date: 20110817
  Receipt Date: 20110808
  Transmission Date: 20111222
  Serious: Yes (Other)
  Sender: FDA-Public Use
  Company Number: PHHY2011US72006

PATIENT
  Age: 42 Year
  Sex: Female

DRUGS (3)
  1. WARFARIN SODIUM [Interacting]
     Dosage: UNK
  2. VALPROIC ACID [Suspect]
     Indication: BIPOLAR DISORDER
     Dosage: UNK
  3. VALPROIC ACID [Interacting]
     Dosage: 250 MG, BID

REACTIONS (2)
  - DRUG INTERACTION [None]
  - INTERNATIONAL NORMALISED RATIO INCREASED [None]
